FAERS Safety Report 5201879-6 (Version None)
Quarter: 2006Q4

REPORT INFORMATION
  Report Type: 
  Country: None (occurrence: None)
  Receive Date: 20061010
  Receipt Date: 20051101
  Transmission Date: 20070319
  Serious: Yes (Other)
  Sender: FDA-Public Use
  Company Number: 2005-01-1639

PATIENT
  Sex: Male

DRUGS (4)
  1. TEMODAR [Suspect]
     Indication: ANAPLASTIC ASTROCYTOMA
     Dosage: 75 MG/M2    ORAL
     Route: 048
     Dates: end: 20051101
  2. TEMODAR [Suspect]
     Indication: ANAPLASTIC ASTROCYTOMA
     Dosage: 150 MG/M2 X 5D      ORAL
     Route: 048
     Dates: end: 20051101
  3. DILANTIN [Concomitant]
  4. RADIATION THERAPY [Concomitant]

REACTIONS (2)
  - GRAND MAL CONVULSION [None]
  - SIMPLE PARTIAL SEIZURES [None]
